FAERS Safety Report 9511252 (Version 2)
Quarter: 2013Q4

REPORT INFORMATION
  Report Type: Spontaneous
  Country: US (occurrence: US)
  Receive Date: 20130910
  Receipt Date: 20131022
  Transmission Date: 20140711
  Serious: Yes (Hospitalization, Other)
  Sender: FDA-Public Use
  Company Number: US-JNJFOC-20130902315

PATIENT
  Age: 76 Year
  Sex: Female
  Weight: 94.35 kg

DRUGS (39)
  1. XARELTO [Suspect]
     Indication: CEREBROVASCULAR ACCIDENT PROPHYLAXIS
     Route: 048
     Dates: start: 20130321
  2. XARELTO [Suspect]
     Indication: ATRIAL FIBRILLATION
     Route: 048
     Dates: start: 20130321
  3. VITAMIN C [Concomitant]
     Indication: PRODUCT USED FOR UNKNOWN INDICATION
     Route: 065
  4. PLAVIX [Concomitant]
     Indication: MYOCARDIAL INFARCTION
     Route: 048
     Dates: start: 2003
  5. DIGOXIN [Concomitant]
     Indication: HEART RATE ABNORMAL
     Route: 048
  6. ZETIA [Concomitant]
     Indication: BLOOD PRESSURE
     Route: 048
  7. ZETIA [Concomitant]
     Indication: CARDIAC DISORDER
     Route: 048
  8. BETHANECHOL [Concomitant]
     Indication: RENAL DISORDER
     Dosage: 1 AT 8 AM AND 3 PM
     Route: 048
  9. BETHANECHOL [Concomitant]
     Indication: BLADDER DISORDER
     Dosage: 1 AT 8 AM AND 3 PM
     Route: 048
  10. LOVAZA [Concomitant]
     Indication: PRODUCT USED FOR UNKNOWN INDICATION
     Dosage: 1 MG/ TWO CAPSULES TWICE DAILY
     Route: 048
  11. COREG [Concomitant]
     Indication: BLOOD PRESSURE
     Route: 048
  12. COREG [Concomitant]
     Indication: CARDIAC DISORDER
     Route: 048
  13. WELCHOL [Concomitant]
     Indication: BLOOD TRIGLYCERIDES
     Dosage: 625 MG THREE TABLETS TWICE DAILY
     Route: 048
  14. WELCHOL [Concomitant]
     Indication: BLOOD CHOLESTEROL ABNORMAL
     Dosage: 625 MG THREE TABLETS TWICE DAILY
     Route: 048
  15. COQ10 [Concomitant]
     Indication: VITAMIN SUPPLEMENTATION
     Route: 048
  16. FERROUS SULFATE [Concomitant]
     Indication: HAEMOGLOBIN DECREASED
     Route: 048
  17. MULTIVITAMINS [Concomitant]
     Indication: VITAMIN SUPPLEMENTATION
     Route: 048
  18. TRAMADOL [Concomitant]
     Indication: PAIN
     Dosage: EVERY 4-6 HOURS AS NEEDED
     Route: 048
  19. LIDODERM [Concomitant]
     Indication: BACK PAIN
     Dosage: AS NEEDED 1 EVERY 12 HOURS
     Route: 062
  20. LIDODERM [Concomitant]
     Indication: MUSCULOSKELETAL PAIN
     Dosage: AS NEEDED 1 EVERY 12 HOURS
     Route: 062
  21. OMEPRAZOLE [Concomitant]
     Indication: GASTROOESOPHAGEAL REFLUX DISEASE
     Route: 048
  22. PREMARIN [Concomitant]
     Indication: HOT FLUSH
     Route: 048
     Dates: start: 2010
  23. AMITIZA [Concomitant]
     Indication: PRODUCT USED FOR UNKNOWN INDICATION
     Route: 065
  24. RAMIPRIL [Concomitant]
     Indication: PRODUCT USED FOR UNKNOWN INDICATION
     Route: 065
  25. VITAMIN D [Concomitant]
     Indication: PRODUCT USED FOR UNKNOWN INDICATION
     Dosage: 50,000
     Route: 065
  26. HYZAAR [Concomitant]
     Indication: PRODUCT USED FOR UNKNOWN INDICATION
     Dosage: 100-25
     Route: 065
  27. COLACE [Concomitant]
     Indication: PRODUCT USED FOR UNKNOWN INDICATION
     Route: 065
  28. CITRACAL D [Concomitant]
     Indication: PRODUCT USED FOR UNKNOWN INDICATION
     Dosage: 2 A DAY I MORNING AND 1 NIGHT
     Route: 065
  29. AMLODIPINE [Concomitant]
     Indication: PRODUCT USED FOR UNKNOWN INDICATION
     Route: 065
  30. CENTRUM SILVER [Concomitant]
     Indication: PRODUCT USED FOR UNKNOWN INDICATION
     Route: 065
  31. NITRO [Concomitant]
     Indication: PRODUCT USED FOR UNKNOWN INDICATION
     Dosage: 0.4 AS NEEDED
     Route: 065
  32. PREMARIN [Concomitant]
     Indication: PRODUCT USED FOR UNKNOWN INDICATION
     Dosage: 0.45
     Route: 065
  33. VITAMIN B12 [Concomitant]
     Indication: PRODUCT USED FOR UNKNOWN INDICATION
     Route: 065
  34. TRAZODONE [Concomitant]
     Indication: PRODUCT USED FOR UNKNOWN INDICATION
     Dosage: 1 OR 2 AT BEDTIME
     Route: 065
  35. GABAPENTIN [Concomitant]
     Indication: PRODUCT USED FOR UNKNOWN INDICATION
     Route: 065
  36. LIVALO [Concomitant]
     Indication: PRODUCT USED FOR UNKNOWN INDICATION
     Dosage: BEFORE MEALS AT BED TIME
     Route: 065
  37. SYMLIN [Concomitant]
     Indication: PRODUCT USED FOR UNKNOWN INDICATION
     Dosage: SYM:IN PEN 120 3 TIMES A DAY 15 MIN
     Route: 065
  38. LEVEMIR [Concomitant]
     Indication: PRODUCT USED FOR UNKNOWN INDICATION
     Dosage: AT NIGHT
     Route: 065
  39. NOVOLOG [Concomitant]
     Indication: PRODUCT USED FOR UNKNOWN INDICATION
     Route: 065

REACTIONS (4)
  - Nausea [Recovered/Resolved]
  - Dehydration [Recovered/Resolved]
  - Renal impairment [Unknown]
  - Alopecia [Not Recovered/Not Resolved]
